FAERS Safety Report 6167746-9 (Version None)
Quarter: 2009Q2

REPORT INFORMATION
  Report Type: 
  Country: None (occurrence: None)
  Receive Date: 20090427
  Receipt Date: 20090416
  Transmission Date: 20091009
  Serious: Yes (Death, Life-Threatening, Hospitalization)
  Sender: FDA-Public Use
  Company Number: DE-CELGENEUS-062-C5013-07060825

PATIENT
  Sex: Male
  Weight: 72 kg

DRUGS (14)
  1. CC-5013 [Suspect]
     Route: 048
     Dates: start: 20070611, end: 20070613
  2. SALBUTAMOL [Concomitant]
     Route: 055
     Dates: end: 20070613
  3. ALLOPURINOL [Concomitant]
     Indication: PROPHYLAXIS
     Route: 048
     Dates: start: 20070611, end: 20070614
  4. ATROVENT [Concomitant]
     Route: 055
     Dates: start: 20030101, end: 20070613
  5. EUNERPAN [Concomitant]
     Route: 048
     Dates: end: 20070615
  6. MORADORM [Concomitant]
     Route: 048
     Dates: end: 20070613
  7. PULMICORT-100 [Concomitant]
     Route: 055
     Dates: start: 20060101, end: 20070615
  8. COTRIM [Concomitant]
     Indication: INFECTION PROPHYLAXIS
     Route: 048
     Dates: end: 20070616
  9. COTRIM [Concomitant]
  10. OMEPRAZOLE [Concomitant]
     Indication: GASTRITIS PROPHYLAXIS
     Route: 048
     Dates: end: 20070613
  11. TORSEMIDE [Concomitant]
     Indication: HYPERTENSION
     Route: 048
     Dates: start: 20030101, end: 20070615
  12. DURAGESIC-100 [Concomitant]
     Indication: PAIN
     Route: 023
     Dates: end: 20070616
  13. BERODUAL [Concomitant]
     Indication: ASTHMA
     Route: 065
     Dates: start: 20070614, end: 20070615
  14. PASPERTIN [Concomitant]
     Indication: NAUSEA
     Route: 065
     Dates: start: 20070615, end: 20070615

REACTIONS (6)
  - BONE PAIN [None]
  - CARDIAC ARREST [None]
  - RENAL FAILURE [None]
  - THROMBOCYTOPENIA [None]
  - TUMOUR FLARE [None]
  - TUMOUR LYSIS SYNDROME [None]
